FAERS Safety Report 18011963 (Version 2)
Quarter: 2020Q3

REPORT INFORMATION
  Report Type: Spontaneous
  Country: US (occurrence: US)
  Receive Date: 20200713
  Receipt Date: 20200725
  Transmission Date: 20201103
  Serious: No
  Sender: FDA-Public Use
  Company Number: US-009507513-2007USA003803

PATIENT
  Age: 15 Year
  Sex: Female
  Weight: 70.3 kg

DRUGS (2)
  1. NEXPLANON [Suspect]
     Active Substance: ETONOGESTREL
     Indication: CONTRACEPTION
     Dosage: 1 IMPLANT, EVERY 3 YEARS, IN THE LEFT ARM
     Route: 059
     Dates: start: 20200519, end: 20200702
  2. BACTRIM [Suspect]
     Active Substance: SULFAMETHOXAZOLE\TRIMETHOPRIM
     Indication: IMPLANT SITE INFECTION
     Dosage: UNK
     Dates: start: 2020

REACTIONS (6)
  - Adverse drug reaction [Recovering/Resolving]
  - Implant site erythema [Recovering/Resolving]
  - Implant site pruritus [Recovering/Resolving]
  - Implant site swelling [Recovering/Resolving]
  - Implant site infection [Recovering/Resolving]
  - Implant site pain [Recovering/Resolving]

NARRATIVE: CASE EVENT DATE: 2020
